FAERS Safety Report 8796944 (Version 2)
Quarter: 2012Q4

REPORT INFORMATION
  Report Type: 
  Country: CN (occurrence: CN)
  Receive Date: 20120920
  Receipt Date: 20120921
  Transmission Date: 20130627
  Serious: Yes (Life-Threatening, Hospitalization)
  Sender: FDA-Public Use
  Company Number: PHHY2012CN079677

PATIENT
  Age: 55 Year
  Sex: Female
  Weight: 50 kg

DRUGS (3)
  1. GLIVEC [Suspect]
     Indication: GASTROINTESTINAL STROMAL TUMOUR
     Dosage: 400 mg, Daily
     Route: 048
     Dates: start: 20110720, end: 201201
  2. GLIVEC [Suspect]
     Dosage: 300 mg, Daily
     Dates: start: 201201, end: 20120720
  3. ENTECAVIR [Concomitant]

REACTIONS (16)
  - Jaundice [Not Recovered/Not Resolved]
  - Blood bilirubin increased [Not Recovered/Not Resolved]
  - Ocular icterus [Unknown]
  - Yellow skin [Unknown]
  - Aspartate aminotransferase increased [Not Recovered/Not Resolved]
  - Alanine aminotransferase increased [Not Recovered/Not Resolved]
  - Gastrointestinal sounds abnormal [Unknown]
  - Muscle tightness [Unknown]
  - Gingival bleeding [Unknown]
  - Listless [Unknown]
  - Lethargy [Unknown]
  - Abdominal tenderness [Unknown]
  - Abdominal rebound tenderness [Unknown]
  - Abdominal distension [Unknown]
  - Fatigue [Unknown]
  - Dizziness [Unknown]
